FAERS Safety Report 7046301-2 (Version None)
Quarter: 2010Q4

REPORT INFORMATION
  Report Type: 
  Country: None (occurrence: None)
  Receive Date: 20101014
  Receipt Date: 20101005
  Transmission Date: 20110411
  Serious: Yes (Death)
  Sender: FDA-Public Use
  Company Number: B0677880A

PATIENT
  Age: 43 Year
  Sex: Male

DRUGS (5)
  1. PIPERACILLIN AND TAZOBACTAM [Suspect]
     Indication: SEPSIS
     Route: 065
  2. FLUCLOXACILLIN [Suspect]
     Route: 042
  3. METRONIDAZOLE [Suspect]
  4. GENTAMICIN [Suspect]
     Route: 065
  5. ACYCLOVIR [Suspect]
     Route: 065

REACTIONS (6)
  - ACIDOSIS [None]
  - DRUG RESISTANCE [None]
  - HYPOTENSION [None]
  - SEPSIS [None]
  - SUPRAVENTRICULAR TACHYCARDIA [None]
  - TREATMENT FAILURE [None]
